FAERS Safety Report 14756154 (Version 1)
Quarter: 2018Q2

REPORT INFORMATION
  Report Type: Spontaneous
  Country: US (occurrence: US)
  Receive Date: 20180413
  Receipt Date: 20180413
  Transmission Date: 20180711
  Serious: No
  Sender: FDA-Public Use
  Company Number: US-BION-006741

PATIENT
  Age: 82 Year
  Sex: Female
  Weight: 91 kg

DRUGS (3)
  1. ALEVE [Suspect]
     Active Substance: NAPROXEN SODIUM
     Indication: PAIN
     Dosage: TOOK 2
     Route: 048
     Dates: start: 20171026, end: 20171026
  2. CALCIUM [Concomitant]
     Active Substance: CALCIUM
  3. MANGANESE [Concomitant]
     Active Substance: MANGANESE\MANGANESE CHLORIDE

REACTIONS (3)
  - Product physical consistency issue [Unknown]
  - Poor quality drug administered [Not Recovered/Not Resolved]
  - Product use in unapproved indication [Not Recovered/Not Resolved]

NARRATIVE: CASE EVENT DATE: 20171026
